FAERS Safety Report 9381783 (Version 1)
Quarter: 2013Q3

REPORT INFORMATION
  Report Type: Spontaneous
  Country: US (occurrence: US)
  Receive Date: 20130703
  Receipt Date: 20130703
  Transmission Date: 20140515
  Serious: No
  Sender: FDA-Public Use
  Company Number: US-TEVA-416597USA

PATIENT
  Sex: Male

DRUGS (2)
  1. AZILECT [Suspect]
     Indication: PARKINSON^S DISEASE
     Route: 048
     Dates: start: 20100701
  2. CARBIDOPA W/LEVODOPA [Concomitant]
     Route: 048

REACTIONS (4)
  - Hypotension [Not Recovered/Not Resolved]
  - Weight decreased [Not Recovered/Not Resolved]
  - Dizziness [Not Recovered/Not Resolved]
  - General physical health deterioration [Not Recovered/Not Resolved]
